FAERS Safety Report 5765407-9 (Version None)
Quarter: 2008Q2

REPORT INFORMATION
  Report Type: 
  Country: None (occurrence: None)
  Receive Date: 20080611
  Receipt Date: 20080530
  Transmission Date: 20081010
  Serious: Yes (Hospitalization)
  Sender: FDA-Public Use
  Company Number: FR-JNJFOC-20080304393

PATIENT
  Age: 83 Year
  Sex: Female

DRUGS (2)
  1. REMICADE [Suspect]
     Indication: CROHN'S DISEASE
     Route: 042
  2. IMUREL [Suspect]
     Indication: CROHN'S DISEASE
     Route: 048

REACTIONS (3)
  - MALIGNANT MELANOMA [None]
  - PYODERMA GANGRENOSUM [None]
  - SQUAMOUS CELL CARCINOMA [None]
